FAERS Safety Report 6782394-5 (Version None)
Quarter: 2010Q2

REPORT INFORMATION
  Report Type: 
  Country: None (occurrence: None)
  Receive Date: 20100621
  Receipt Date: 20100617
  Transmission Date: 20101027
  Serious: Yes (Other)
  Sender: FDA-Public Use
  Company Number: TR-ROXANE LABORATORIES, INC.-2010-RO-00727RO

PATIENT
  Age: 6 Year
  Sex: Male

DRUGS (5)
  1. DIGOXIN [Suspect]
     Indication: CARDIAC FAILURE
  2. FUROSEMIDE [Suspect]
     Indication: CARDIAC FAILURE
  3. DOPAMINE HCL [Suspect]
     Indication: CARDIAC FAILURE
  4. DOBUTAMINE HCL [Suspect]
     Indication: CARDIAC FAILURE
  5. ACE INHIBITOR [Suspect]
     Indication: CARDIAC FAILURE

REACTIONS (1)
  - DRUG INEFFECTIVE [None]
